FAERS Safety Report 19330264 (Version 1)
Quarter: 2021Q2

REPORT INFORMATION
  Report Type: Spontaneous
  Country: US (occurrence: US)
  Receive Date: 20210528
  Receipt Date: 20210528
  Transmission Date: 20210717
  Serious: Yes (Other)
  Sender: FDA-Public Use
  Company Number: US-MYLANLABS-2021M1030751

PATIENT
  Age: 19 Year
  Sex: Female

DRUGS (4)
  1. EPINEPHRINE. [Suspect]
     Active Substance: EPINEPHRINE
     Indication: PERIORBITAL SWELLING
     Dosage: UNK
     Dates: start: 20210520
  2. PFIZER?BIONTECH COVID?19 VACCINE [Suspect]
     Active Substance: TOZINAMERAN
  3. ALBUTEROL                          /00139501/ [Suspect]
     Active Substance: ALBUTEROL
  4. EPINEPHRINE. [Suspect]
     Active Substance: EPINEPHRINE
     Indication: RESPIRATORY SYMPTOM

REACTIONS (2)
  - Hypocalcaemia [Unknown]
  - Hypokalaemia [Unknown]
